FAERS Safety Report 8814853 (Version 2)
Quarter: 2013Q2

REPORT INFORMATION
  Report Type: Spontaneous
  Country: FR (occurrence: FR)
  Receive Date: 20120928
  Receipt Date: 20130417
  Transmission Date: 20140414
  Serious: Yes (Hospitalization)
  Sender: FDA-Public Use
  Company Number: FR-PFIZER INC-2012005986

PATIENT
  Age: 58 Year
  Sex: Female

DRUGS (6)
  1. EUPANTOL [Suspect]
     Dosage: 20 MG, DAILY
     Route: 048
     Dates: end: 20111112
  2. DOMPERIDONE [Suspect]
     Dosage: 2 DF, DAILY
     Route: 048
     Dates: end: 20111112
  3. AERIUS [Suspect]
     Dosage: UNK
     Dates: start: 20111014, end: 20111030
  4. ONDANSETRON [Suspect]
     Dosage: UNK
     Dates: start: 20111017, end: 20111026
  5. EMEND [Suspect]
     Dosage: UNK
     Route: 048
     Dates: start: 20111017, end: 20111026
  6. PLITICAN [Suspect]
     Dosage: UNK
     Route: 042
     Dates: start: 20111017, end: 20111107

REACTIONS (6)
  - Blister [Recovered/Resolved]
  - Rash erythematous [Recovered/Resolved]
  - Pruritus [Recovered/Resolved]
  - Face oedema [Recovered/Resolved]
  - Oedema peripheral [Recovered/Resolved]
  - Hyperthermia [Recovered/Resolved]
